FAERS Safety Report 16912287 (Version 1)
Quarter: 2019Q4

REPORT INFORMATION
  Report Type: Spontaneous
  Country: IT (occurrence: IT)
  Receive Date: 20191014
  Receipt Date: 20191014
  Transmission Date: 20200122
  Serious: Yes (Other)
  Sender: FDA-Public Use
  Company Number: IT-AUROBINDO-AUR-APL-2019-065797

PATIENT
  Age: 22 Year
  Sex: Female
  Weight: 65 kg

DRUGS (4)
  1. CONTRAMAL [Suspect]
     Active Substance: TRAMADOL HYDROCHLORIDE
     Indication: PRODUCT USED FOR UNKNOWN INDICATION
     Dosage: UNK
     Route: 065
     Dates: start: 20011112, end: 20181005
  2. ETANERCEPT [Concomitant]
     Active Substance: ETANERCEPT
     Indication: PRODUCT USED FOR UNKNOWN INDICATION
     Dosage: UNK
     Route: 065
     Dates: start: 20011112, end: 20181005
  3. TRAMADOL+PARACETAMOL FILM-COATED TABLET [Suspect]
     Active Substance: ACETAMINOPHEN\TRAMADOL
     Indication: PRODUCT USED FOR UNKNOWN INDICATION
     Dosage: UNK
     Route: 065
     Dates: start: 20011112, end: 20181005
  4. TINSET [Suspect]
     Active Substance: OXATOMIDE
     Indication: PRODUCT USED FOR UNKNOWN INDICATION
     Dosage: UNK
     Route: 065
     Dates: start: 20011112, end: 20181005

REACTIONS (7)
  - Pyrexia [Recovering/Resolving]
  - Hepatic mass [Recovering/Resolving]
  - Blister [Recovering/Resolving]
  - Amnesia [Recovering/Resolving]
  - Peripheral swelling [Recovering/Resolving]
  - Pruritus [Recovering/Resolving]
  - Occupational exposure to product [Recovering/Resolving]

NARRATIVE: CASE EVENT DATE: 20020124
